FAERS Safety Report 5732546-8 (Version None)
Quarter: 2008Q2

REPORT INFORMATION
  Report Type: 
  Country: None (occurrence: None)
  Receive Date: 20080507
  Receipt Date: 20080423
  Transmission Date: 20081010
  Serious: Yes (Other)
  Sender: FDA-Public Use
  Company Number: 2008S1000126

PATIENT
  Age: 30 Year
  Sex: Female

DRUGS (2)
  1. SORIATANE [Suspect]
     Indication: DRUG USE FOR UNKNOWN INDICATION
     Dosage: 35 MG;QD;PO : 25 MG;QD;PO
     Route: 048
     Dates: start: 20070501, end: 20070601
  2. SORIATANE [Suspect]
     Indication: DRUG USE FOR UNKNOWN INDICATION
     Dosage: 35 MG;QD;PO : 25 MG;QD;PO
     Route: 048
     Dates: start: 20070601, end: 20070701

REACTIONS (2)
  - MATERNAL DRUGS AFFECTING FOETUS [None]
  - PREGNANCY [None]
